FAERS Safety Report 8439003-9 (Version None)
Quarter: 2012Q2

REPORT INFORMATION
  Report Type: 
  Country: None (occurrence: None)
  Receive Date: 20120608
  Receipt Date: 20120529
  Transmission Date: 20120825
  Serious: Yes (Hospitalization)
  Sender: FDA-Public Use
  Company Number: ACO_30510_2012

PATIENT
  Sex: Female

DRUGS (5)
  1. BUSPAR [Concomitant]
  2. NEURONTIN [Concomitant]
  3. ZOLOFT [Concomitant]
  4. AMPYRA [Suspect]
     Indication: MULTIPLE SCLEROSIS
     Dosage: 10 MG, BID, ORAL
     Route: 048
     Dates: start: 20110101
  5. LORAZEPAM [Concomitant]

REACTIONS (2)
  - OSTEONECROSIS [None]
  - MUSCLE SPASMS [None]
